FAERS Safety Report 23139343 (Version 1)
Quarter: 2023Q4

REPORT INFORMATION
  Report Type: Other
  Country: CN (occurrence: CN)
  Receive Date: 20231102
  Receipt Date: 20231102
  Transmission Date: 20240110
  Serious: Yes (Other)
  Sender: FDA-Public Use
  Company Number: CN-BoehringerIngelheim-2023-BI-269520

PATIENT
  Age: 71 Year
  Sex: Male
  Weight: 65 kg

DRUGS (3)
  1. ALTEPLASE [Suspect]
     Active Substance: ALTEPLASE
     Indication: Ischaemic stroke
     Dosage: 3.9 MG OF R PA WAS INTRAVENOUSLY PUSHED IN THE INITIAL 1 MINUTE
     Route: 042
  2. ALTEPLASE [Suspect]
     Active Substance: ALTEPLASE
     Dosage: REMAINING 35.1 MG IVGTT (PERSISTENTLY COMPLETED WITHIN 1 HOUR)
     Route: 042
  3. ALTEPLASE [Suspect]
     Active Substance: ALTEPLASE
     Dosage: WITHIN 5 MINUTES
     Route: 042

REACTIONS (5)
  - Cerebral infarction [Recovering/Resolving]
  - Ischaemic cerebral infarction [Recovering/Resolving]
  - Drug ineffective [Unknown]
  - Extravasation blood [Unknown]
  - Infusion site extravasation [Unknown]
